FAERS Safety Report 12813582 (Version 1)
Quarter: 2016Q4

REPORT INFORMATION
  Report Type: Spontaneous
  Country: US (occurrence: US)
  Receive Date: 20161005
  Receipt Date: 20161005
  Transmission Date: 20170207
  Serious: No
  Sender: FDA-Public Use
  Company Number: US-AMGEN-USASP2016031945

PATIENT
  Sex: Female

DRUGS (6)
  1. LISINOPRIL. [Concomitant]
     Active Substance: LISINOPRIL
  2. XANAX [Concomitant]
     Active Substance: ALPRAZOLAM
  3. CALCIUM [Concomitant]
     Active Substance: CALCIUM
  4. NAPROXEN. [Concomitant]
     Active Substance: NAPROXEN
  5. PROLIA [Suspect]
     Active Substance: DENOSUMAB
     Indication: PRODUCT USED FOR UNKNOWN INDICATION
     Dosage: UNK
     Route: 065
     Dates: start: 2014
  6. ASA [Concomitant]
     Active Substance: ASPIRIN

REACTIONS (2)
  - Eczema [Recovering/Resolving]
  - Erythema [Recovering/Resolving]
